FAERS Safety Report 23592836 (Version 2)
Quarter: 2024Q1

REPORT INFORMATION
  Report Type: Report from Study
  Country: US (occurrence: US)
  Receive Date: 20240304
  Receipt Date: 20240331
  Transmission Date: 20240409
  Serious: Yes (Hospitalization, Other)
  Sender: FDA-Public Use
  Company Number: US-002147023-NVSC2024US039717

PATIENT
  Sex: Male

DRUGS (4)
  1. PROMACTA [Suspect]
     Active Substance: ELTROMBOPAG OLAMINE
     Indication: Immune thrombocytopenia
     Dosage: 150 MG, QD
     Route: 048
     Dates: start: 202402
  2. PROMACTA [Suspect]
     Active Substance: ELTROMBOPAG OLAMINE
     Indication: Aplastic anaemia
  3. PROMACTA [Suspect]
     Active Substance: ELTROMBOPAG OLAMINE
     Indication: Autoimmune haemolytic anaemia
  4. CYCLOSPORINE [Concomitant]
     Active Substance: CYCLOSPORINE
     Indication: Product used for unknown indication
     Dosage: UNK (MODIFIED)
     Route: 065

REACTIONS (5)
  - Bone marrow disorder [Unknown]
  - Myelodysplastic syndrome [Unknown]
  - Rhinorrhoea [Unknown]
  - Nausea [Unknown]
  - Product use in unapproved indication [Unknown]
